FAERS Safety Report 5254943-X (Version None)
Quarter: 2007Q1

REPORT INFORMATION
  Report Type: 
  Country: None (occurrence: None)
  Receive Date: 20070305
  Receipt Date: 20070220
  Transmission Date: 20070707
  Serious: Yes (Hospitalization)
  Sender: FDA-Public Use
  Company Number: PHNR2007AU00710

PATIENT
  Age: 60 Year
  Sex: Male

DRUGS (12)
  1. TEGRETOL [Suspect]
     Indication: NEURALGIA
     Dosage: 400MG DAILY
     Route: 048
  2. EPILIM [Suspect]
     Indication: NEURALGIA
     Dosage: 2G DAILY
     Route: 048
  3. ENDEP [Concomitant]
  4. NUELIN - SLOW RELEASE [Concomitant]
  5. MAXOLON [Concomitant]
     Indication: NAUSEA
  6. PREDNISOLONE [Concomitant]
  7. FUROSEMIDE [Concomitant]
  8. SPIRONOLACTONE [Concomitant]
  9. LANSOPRAZOLE [Concomitant]
  10. VENTOLIN [Concomitant]
  11. OXIS [Concomitant]
  12. FLIXOTIDE [Concomitant]

REACTIONS (6)
  - COORDINATION ABNORMAL [None]
  - DRUG LEVEL INCREASED [None]
  - DYSARTHRIA [None]
  - FEELING DRUNK [None]
  - GAIT DISTURBANCE [None]
  - VERTIGO [None]
